FAERS Safety Report 9095077 (Version 2)
Quarter: 2013Q1

REPORT INFORMATION
  Report Type: Report from Study
  Country: IL (occurrence: IL)
  Receive Date: 20130201
  Receipt Date: 20130213
  Transmission Date: 20140127
  Serious: Yes (Death)
  Sender: FDA-Public Use
  Company Number: IL-SANOFI-AVENTIS-2013SA009253

PATIENT
  Age: 89 Year
  Sex: Male

DRUGS (1)
  1. LANTUS [Suspect]
     Indication: DIABETES MELLITUS
     Dosage: DOSE:12?UNITS:NOTSPECIFIED
     Route: 065

REACTIONS (1)
  - Pneumonia [Fatal]
